FAERS Safety Report 4410248-8 (Version None)
Quarter: 2004Q2

REPORT INFORMATION
  Report Type: 
  Country: None (occurrence: None)
  Receive Date: 20040618
  Receipt Date: 20040329
  Transmission Date: 20050107
  Serious: No
  Sender: FDA-Public Use
  Company Number: US-JNJFOC-20040306668

PATIENT
  Age: 41 Year
  Sex: Female
  Weight: 102.0593 kg

DRUGS (1)
  1. ORTHO EVRA [Suspect]
     Indication: DYSMENORRHOEA
     Dosage: 1 DOSE(S) 3 IN 4 WEEK TRANSDERMAL
     Route: 062
     Dates: start: 20040321

REACTIONS (3)
  - BREAST DISORDER [None]
  - MENORRHAGIA [None]
  - WEIGHT INCREASED [None]
